FAERS Safety Report 11071355 (Version 1)
Quarter: 2015Q2

REPORT INFORMATION
  Report Type: Spontaneous
  Country: US (occurrence: None)
  Receive Date: 20150427
  Receipt Date: 20150427
  Transmission Date: 20150821
  Serious: Yes (Other)
  Sender: FDA-Public Use
  Company Number: None

PATIENT
  Age: 59 Year
  Sex: Male
  Weight: 77.11 kg

DRUGS (2)
  1. ACETAMINOPHEN W/ HYDROCODONE BITARTRATE [Suspect]
     Active Substance: ACETAMINOPHEN\HYDROCODONE BITARTRATE
     Indication: PAIN
     Dosage: 2, THREE TIMES DAILY, TAKEN BY MOUTH
     Route: 048
     Dates: start: 20150422, end: 20150425
  2. NAPROXEN. [Concomitant]
     Active Substance: NAPROXEN

REACTIONS (3)
  - Nausea [None]
  - Drug ineffective [None]
  - Migraine [None]

NARRATIVE: CASE EVENT DATE: 20150424
